FAERS Safety Report 8452675-8 (Version None)
Quarter: 2012Q2

REPORT INFORMATION
  Report Type: 
  Country: None (occurrence: None)
  Receive Date: 20120620
  Receipt Date: 20120614
  Transmission Date: 20120825
  Serious: Yes (Other)
  Sender: FDA-Public Use
  Company Number: PHHY2012LB051861

PATIENT
  Sex: Female

DRUGS (3)
  1. CERTICAN [Suspect]
     Dosage: 0.75 MG 1 TAB TWICE DAILY
  2. CERTICAN [Suspect]
     Indication: RENAL TRANSPLANT
     Dosage: 0.5 MG, BID
     Route: 048
     Dates: start: 20111001
  3. CERTICAN [Suspect]
     Dosage: 0.75 MG 3 TABS TWICE DAILY

REACTIONS (2)
  - EOSINOPHILIA [None]
  - IMMUNOSUPPRESSANT DRUG LEVEL INCREASED [None]
